FAERS Safety Report 16971413 (Version 1)
Quarter: 2019Q4

REPORT INFORMATION
  Report Type: Spontaneous
  Country: FR (occurrence: FR)
  Receive Date: 20191029
  Receipt Date: 20191029
  Transmission Date: 20200122
  Serious: Yes (Other)
  Sender: FDA-Public Use
  Company Number: FR-ASTRAZENECA-2019SF52245

PATIENT
  Age: 23564 Day
  Sex: Female

DRUGS (3)
  1. FASLODEX [Suspect]
     Active Substance: FULVESTRANT
     Indication: BREAST CANCER FEMALE
     Route: 030
     Dates: start: 201702, end: 20191016
  2. XGEVA [Concomitant]
     Active Substance: DENOSUMAB
  3. IBRANCE [Concomitant]
     Active Substance: PALBOCICLIB
     Dates: start: 201804

REACTIONS (6)
  - Throat irritation [Recovering/Resolving]
  - Hyperaesthesia [Not Recovered/Not Resolved]
  - Dyspnoea [Recovered/Resolved]
  - Paraesthesia [Recovering/Resolving]
  - Cough [Recovering/Resolving]
  - Hypersensitivity [Recovering/Resolving]

NARRATIVE: CASE EVENT DATE: 20191016
